FAERS Safety Report 7257324-2 (Version None)
Quarter: 2011Q1

REPORT INFORMATION
  Report Type: 
  Country: None (occurrence: None)
  Receive Date: 20110129
  Receipt Date: 20100625
  Transmission Date: 20110831
  Serious: No
  Sender: FDA-Public Use
  Company Number: US-ABBOTT-10P-163-0654227-00

PATIENT
  Age: 36 Year
  Sex: Male

DRUGS (7)
  1. COLACE [Concomitant]
     Indication: PRODUCT USED FOR UNKNOWN INDICATION
     Route: 048
  2. DILAUDID [Concomitant]
     Indication: PAIN
     Route: 048
  3. FLEXERIL [Concomitant]
     Indication: PAIN
  4. HUMIRA [Suspect]
  5. PERCOCET [Concomitant]
     Indication: PAIN
     Dosage: 1-2 TABS EVERY 4-6 HOURS AS NEEDED
     Route: 048
  6. VITAMIN D [Concomitant]
     Indication: PRODUCT USED FOR UNKNOWN INDICATION
  7. HUMIRA [Suspect]
     Indication: CROHN'S DISEASE
     Dosage: 4 INJECTIONS TO BEGIN THERAPY
     Dates: start: 20100624

REACTIONS (6)
  - PYREXIA [None]
  - INFLUENZA [None]
  - MALAISE [None]
  - FEELING ABNORMAL [None]
  - HYPOAESTHESIA [None]
  - SWOLLEN TONGUE [None]
